FAERS Safety Report 7805383-8 (Version None)
Quarter: 2011Q4

REPORT INFORMATION
  Report Type: 
  Country: None (occurrence: None)
  Receive Date: 20111010
  Receipt Date: 20110929
  Transmission Date: 20120403
  Serious: Yes (Other)
  Sender: FDA-Public Use
  Company Number: US-ASTRAZENECA-2010SE44979

PATIENT
  Age: 22 Year
  Sex: Male
  Weight: 106.6 kg

DRUGS (6)
  1. LITHIUM [Concomitant]
  2. XANAX [Concomitant]
  3. SEROQUEL [Suspect]
     Indication: BIPOLAR DISORDER
     Route: 048
     Dates: start: 20060101, end: 20100801
  4. LITHIUM [Concomitant]
  5. SEROQUEL [Suspect]
     Route: 048
     Dates: start: 20100101
  6. PROPRANOLOL [Concomitant]

REACTIONS (10)
  - ANGER [None]
  - MENTAL DISORDER [None]
  - HOMICIDAL IDEATION [None]
  - DEPRESSION [None]
  - DRUG DOSE OMISSION [None]
  - SUICIDAL IDEATION [None]
  - AGGRESSION [None]
  - MALAISE [None]
  - AGITATION [None]
  - RESTLESS LEGS SYNDROME [None]
